FAERS Safety Report 5482470-3 (Version None)
Quarter: 2007Q4

REPORT INFORMATION
  Report Type: 
  Country: None (occurrence: None)
  Receive Date: 20071011
  Receipt Date: 20071010
  Transmission Date: 20080405
  Serious: Yes (Other)
  Sender: FDA-Public Use
  Company Number: US-ASTRAZENECA-2007UW21192

PATIENT
  Age: 15 Year
  Sex: Female
  Weight: 65.9 kg

DRUGS (7)
  1. SEROQUEL [Suspect]
     Indication: ANGER
     Route: 048
  2. SEROQUEL [Suspect]
     Route: 048
     Dates: start: 20070801, end: 20070910
  3. SEROQUEL [Suspect]
     Route: 048
     Dates: start: 20070911
  4. HALDOL [Concomitant]
     Indication: ANGER
  5. HALDOL [Concomitant]
     Indication: AGITATION
  6. HALDOL [Concomitant]
     Route: 048
     Dates: start: 20070901
  7. HALDOL [Concomitant]
     Route: 048
     Dates: start: 20070901

REACTIONS (4)
  - AMENORRHOEA [None]
  - BREAST PAIN [None]
  - GALACTORRHOEA [None]
  - HYPERPROLACTINAEMIA [None]
